FAERS Safety Report 16414065 (Version 2)
Quarter: 2019Q2

REPORT INFORMATION
  Report Type: Report from Study
  Country: US (occurrence: US)
  Receive Date: 20190611
  Receipt Date: 20190619
  Transmission Date: 20190711
  Serious: Yes (Hospitalization, Other)
  Sender: FDA-Public Use
  Company Number: US-GILEAD-2019-0412603

PATIENT
  Sex: Female

DRUGS (1)
  1. RANOLAZINE. [Suspect]
     Active Substance: RANOLAZINE
     Indication: ANGINA PECTORIS
     Dosage: 1000 MG, BID
     Route: 048
     Dates: start: 199910, end: 20190610

REACTIONS (5)
  - Sepsis [Unknown]
  - Dyspnoea [Unknown]
  - Product dose omission [Unknown]
  - Vomiting [Unknown]
  - Intentional product use issue [Unknown]
